FAERS Safety Report 20349172 (Version 1)
Quarter: 2022Q1

REPORT INFORMATION
  Report Type: Spontaneous
  Country: CA (occurrence: CA)
  Receive Date: 20220119
  Receipt Date: 20220119
  Transmission Date: 20220423
  Serious: Yes (Hospitalization, Other)
  Sender: FDA-Public Use
  Company Number: CA-APOTEX-2022AP002112

PATIENT
  Sex: Male

DRUGS (9)
  1. PAROXETINE [Suspect]
     Active Substance: PAROXETINE
     Indication: Depression
     Dosage: UNK
     Route: 065
  2. PAROXETINE [Suspect]
     Active Substance: PAROXETINE
     Dosage: 10 MILLIGRAM, QD
     Route: 065
  3. PAROXETINE [Suspect]
     Active Substance: PAROXETINE
     Dosage: 20 MILLIGRAM, QD
     Route: 065
  4. RISPERIDONE [Suspect]
     Active Substance: RISPERIDONE
     Indication: Depression
     Dosage: UNK
     Route: 065
  5. ARIPIPRAZOLE [Suspect]
     Active Substance: ARIPIPRAZOLE
     Indication: Depression
     Dosage: UNK
     Route: 065
  6. ASENAPINE [Suspect]
     Active Substance: ASENAPINE
     Indication: Depression
     Dosage: 5 MILLIGRAM, QD
     Route: 065
  7. ASENAPINE [Suspect]
     Active Substance: ASENAPINE
     Dosage: 5 MILLIGRAM, BID
     Route: 065
  8. MEDROXYPROGESTERONE [Concomitant]
     Active Substance: MEDROXYPROGESTERONE
     Indication: Product used for unknown indication
     Dosage: 200 MILLIGRAM
     Route: 030
  9. BENZTROPINE [Concomitant]
     Active Substance: BENZTROPINE
     Indication: Product used for unknown indication
     Dosage: 2 MILLIGRAM, Q.AM
     Route: 065

REACTIONS (6)
  - Toxicity to various agents [Unknown]
  - Head titubation [Recovering/Resolving]
  - Sedation complication [Recovering/Resolving]
  - Serotonin syndrome [Unknown]
  - Extrapyramidal disorder [Recovering/Resolving]
  - Cogwheel rigidity [Recovering/Resolving]
